FAERS Safety Report 12224482 (Version 1)
Quarter: 2016Q1

REPORT INFORMATION
  Report Type: Report from Study
  Country: DE (occurrence: DE)
  Receive Date: 20160331
  Receipt Date: 20160331
  Transmission Date: 20160526
  Serious: Yes (Other)
  Sender: FDA-Public Use
  Company Number: DE-BIOGEN-2015BI134075

PATIENT
  Sex: Female
  Weight: 81 kg

DRUGS (2)
  1. BROMOCRIPTIN [Concomitant]
     Indication: HORMONE THERAPY
     Route: 065
     Dates: start: 201303, end: 201503
  2. AVONEX [Suspect]
     Active Substance: INTERFERON BETA-1A
     Indication: MULTIPLE SCLEROSIS
     Route: 030
     Dates: start: 20130401, end: 20150607

REACTIONS (2)
  - Gallbladder disorder [Unknown]
  - Maternal exposure during pregnancy [Recovered/Resolved]
